FAERS Safety Report 5065401-X (Version None)
Quarter: 2006Q3

REPORT INFORMATION
  Report Type: 
  Country: None (occurrence: None)
  Receive Date: 20060731
  Receipt Date: 20060724
  Transmission Date: 20061208
  Serious: Yes (Hospitalization)
  Sender: FDA-Public Use
  Company Number: JP-AVENTIS-200612342JP

PATIENT
  Age: 74 Year
  Sex: Female

DRUGS (8)
  1. ARAVA [Suspect]
     Indication: RHEUMATOID ARTHRITIS
     Route: 048
     Dates: start: 20030919, end: 20030921
  2. ARAVA [Suspect]
     Route: 048
     Dates: start: 20030922
  3. FOSAMAC TABLETS [Concomitant]
  4. FERROMIA [Concomitant]
  5. GEFANIL [Concomitant]
  6. TAKEPRON [Concomitant]
  7. PREDNISOLONE [Concomitant]
  8. AZULFIDINE [Concomitant]
     Indication: RHEUMATOID ARTHRITIS
     Route: 048
     Dates: end: 20030918

REACTIONS (1)
  - GASTRIC CANCER RECURRENT [None]
